FAERS Safety Report 12497562 (Version 1)
Quarter: 2016Q2

REPORT INFORMATION
  Report Type: Report from Study
  Country: BR (occurrence: BR)
  Receive Date: 20160625
  Receipt Date: 20160625
  Transmission Date: 20160815
  Serious: Yes (Death, Hospitalization)
  Sender: FDA-Public Use
  Company Number: PHHY2016BR086899

PATIENT
  Sex: Male
  Weight: 50 kg

DRUGS (2)
  1. ONBREZ BREEZHALER [Suspect]
     Active Substance: INDACATEROL
     Indication: EMPHYSEMA
     Dosage: 500 MG, BID
     Route: 055
  2. OXIMAX [Concomitant]
     Active Substance: MOMETASONE FUROATE
     Indication: DYSPNOEA
     Dosage: UNK UNK, QD
     Route: 065

REACTIONS (11)
  - Drug ineffective [Unknown]
  - Malignant dysphagia [Unknown]
  - Eating disorder [Unknown]
  - Oxygen saturation decreased [Fatal]
  - Laryngeal cancer [Unknown]
  - Cachexia [Unknown]
  - Cardio-respiratory arrest [Fatal]
  - Malaise [Unknown]
  - Dyspnoea [Fatal]
  - Respiratory disorder [Unknown]
  - Mass [Unknown]
